FAERS Safety Report 10665384 (Version 5)
Quarter: 2016Q2

REPORT INFORMATION
  Report Type: Spontaneous
  Country: US (occurrence: US)
  Receive Date: 20141219
  Receipt Date: 20160530
  Transmission Date: 20160815
  Serious: Yes (Hospitalization, Other)
  Sender: FDA-Public Use
  Company Number: US-PFIZER INC-2014345307

PATIENT
  Age: 48 Year
  Sex: Female

DRUGS (4)
  1. LIDOCAINE. [Suspect]
     Active Substance: LIDOCAINE
     Indication: PAIN
     Dosage: UNK
  2. DEPO-MEDROL [Suspect]
     Active Substance: METHYLPREDNISOLONE ACETATE
     Indication: PAIN
     Dosage: UNK, UNKNOWN DOSE FROM 10 ML VIAL (40 MG/ML)
  3. DEPO-MEDROL [Suspect]
     Active Substance: METHYLPREDNISOLONE ACETATE
     Dosage: UNK
     Dates: start: 20140121
  4. LIDOCAINE. [Suspect]
     Active Substance: LIDOCAINE
     Dosage: UNK
     Route: 058
     Dates: start: 20140121

REACTIONS (6)
  - Infection [Unknown]
  - Product contamination [Unknown]
  - Product quality issue [Unknown]
  - Headache [Unknown]
  - Nodule [Unknown]
  - Drug administration error [Unknown]

NARRATIVE: CASE EVENT DATE: 2014
